FAERS Safety Report 24210752 (Version 1)
Quarter: 2024Q3

REPORT INFORMATION
  Report Type: Spontaneous
  Country: IN (occurrence: IN)
  Receive Date: 20240814
  Receipt Date: 20240814
  Transmission Date: 20241016
  Serious: Yes (Other)
  Sender: PERRIGO
  Company Number: IN-PERRIGO-24IN007399

PATIENT
  Age: 17 Year
  Sex: Female

DRUGS (10)
  1. ACETAMINOPHEN [Suspect]
     Active Substance: ACETAMINOPHEN
     Indication: Sinusitis
     Dosage: UNKNOWN, UNKNOWN
     Route: 048
  2. ACETAMINOPHEN [Suspect]
     Active Substance: ACETAMINOPHEN
     Indication: Asthenia
  3. LEVOCETIRIZINE DIHYDROCHLORIDE [Suspect]
     Active Substance: LEVOCETIRIZINE DIHYDROCHLORIDE
     Indication: Sinusitis
     Dosage: UNKNOWN, UNKNOWN
     Route: 048
  4. LEVOCETIRIZINE DIHYDROCHLORIDE [Suspect]
     Active Substance: LEVOCETIRIZINE DIHYDROCHLORIDE
     Indication: Asthenia
  5. CETIRIZINE HYDROCHLORIDE [Suspect]
     Active Substance: CETIRIZINE HYDROCHLORIDE
     Indication: Sinusitis
     Dosage: UNKNOWN, UNKNOWN
     Route: 048
  6. CETIRIZINE HYDROCHLORIDE [Suspect]
     Active Substance: CETIRIZINE HYDROCHLORIDE
     Indication: Asthenia
  7. VITAMINS [Suspect]
     Active Substance: VITAMINS
     Indication: Sinusitis
     Dosage: UNKNOWN, UNKNOWN
     Route: 065
  8. VITAMINS [Suspect]
     Active Substance: VITAMINS
     Indication: Asthenia
  9. FERROUS SULFATE [Suspect]
     Active Substance: FERROUS SULFATE
     Indication: Sinusitis
     Dosage: UNKNOWN, UNKNOWN
     Route: 065
  10. FERROUS SULFATE [Suspect]
     Active Substance: FERROUS SULFATE
     Indication: Asthenia

REACTIONS (1)
  - Fixed eruption [Unknown]
